FAERS Safety Report 8828111 (Version 1)
Quarter: 2012Q4

REPORT INFORMATION
  Report Type: 
  Country: US (occurrence: US)
  Receive Date: 20121005
  Receipt Date: 20121005
  Transmission Date: 20130627
  Serious: Yes (Other)
  Sender: FDA-Public Use
  Company Number: US-PFIZER INC-2012245889

PATIENT
  Sex: Male
  Weight: 81.63 kg

DRUGS (3)
  1. INDERAL [Suspect]
     Indication: BLOOD TRIGLYCERIDES INCREASED
     Dosage: UNK
     Dates: end: 1995
  2. INDERAL [Suspect]
     Indication: BLOOD CHOLESTEROL INCREASED
  3. GABAMAX [Concomitant]
     Dosage: UNK

REACTIONS (2)
  - Myocardial infarction [Recovered/Resolved]
  - Drug ineffective [Unknown]
